FAERS Safety Report 16367328 (Version 1)
Quarter: 2019Q2

REPORT INFORMATION
  Report Type: Spontaneous
  Country: CA (occurrence: CA)
  Receive Date: 20190529
  Receipt Date: 20190529
  Transmission Date: 20190711
  Serious: Yes (Other)
  Sender: FDA-Public Use
  Company Number: CA-PFIZER INC-2017317219

PATIENT
  Age: 59 Year
  Sex: Male
  Weight: 117 kg

DRUGS (14)
  1. AMLODIPINE [Concomitant]
     Active Substance: AMLODIPINE BESYLATE
     Dosage: 10 MG, AS NEEDED
  2. RANITIDINE. [Concomitant]
     Active Substance: RANITIDINE
     Dosage: 150 MG, UNK
  3. ROSUVASTATIN. [Concomitant]
     Active Substance: ROSUVASTATIN
     Dosage: 20 MG, UNK
  4. SUTENT [Suspect]
     Active Substance: SUNITINIB MALATE
     Dosage: 37.5 MG, CYCLIC (1 CAPSULE (25MG) ALONG WITH 1 CAPSULE (12.5MG) (A TOTAL OF 37.5MG), ONCE DAILY FOR)
     Route: 048
     Dates: start: 2018, end: 2018
  5. VITAMIN D NOS [Concomitant]
     Active Substance: VITAMIN D NOS
     Dosage: UNK
  6. GLUCOSAMINE [Concomitant]
     Active Substance: GLUCOSAMINE
     Dosage: UNK
  7. SUTENT [Suspect]
     Active Substance: SUNITINIB MALATE
     Dosage: 25 MG, CYCLIC (DAILY X 14 DAYS THEN OFF FOR 14 DAYS (2WEEKS ON, 2 WEEKS OFF) IN 28 DAY CYCLE)
     Route: 048
     Dates: start: 20181012
  8. SUTENT [Suspect]
     Active Substance: SUNITINIB MALATE
     Dosage: 25 MG, CYCLIC (14 DAYS OF 28DAYS)
     Route: 048
     Dates: start: 20180103, end: 20190130
  9. ATENOL [Concomitant]
     Active Substance: ATENOLOL
     Dosage: 50 MG, AS NEEDED
  10. VITAMIN C [Concomitant]
     Active Substance: ASCORBIC ACID
     Dosage: UNK
  11. SUTENT [Suspect]
     Active Substance: SUNITINIB MALATE
     Indication: METASTATIC RENAL CELL CARCINOMA
     Dosage: 50 MG, CYCLIC (DAILY 2 WEEKS ON, 1 WEEK OFF)
     Dates: start: 20180104, end: 2018
  12. ALLOPURINOL. [Concomitant]
     Active Substance: ALLOPURINOL
     Dosage: 200 MG, UNK
  13. VITAMIN B [Concomitant]
     Active Substance: VITAMIN B
     Dosage: UNK
  14. RENAGEL [Concomitant]
     Active Substance: SEVELAMER HYDROCHLORIDE
     Dosage: UNK

REACTIONS (8)
  - Diarrhoea [Unknown]
  - Dyspnoea [Recovered/Resolved]
  - Pulmonary toxicity [Unknown]
  - Neoplasm progression [Unknown]
  - Cough [Recovered/Resolved]
  - Lung disorder [Unknown]
  - Haemoptysis [Unknown]
  - Pain [Unknown]

NARRATIVE: CASE EVENT DATE: 201801
